FAERS Safety Report 19783016 (Version 1)
Quarter: 2021Q3

REPORT INFORMATION
  Report Type: Report from Study
  Country: US (occurrence: US)
  Receive Date: 20210902
  Receipt Date: 20210902
  Transmission Date: 20211014
  Serious: No
  Sender: FDA-Public Use
  Company Number: NVSC2021US199062

PATIENT
  Sex: Female
  Weight: 148 kg

DRUGS (1)
  1. TREPROSTINIL. [Suspect]
     Active Substance: TREPROSTINIL
     Indication: PULMONARY ARTERIAL HYPERTENSION
     Dosage: 85 NG/KG/MIN, CONTINUOUS
     Route: 058
     Dates: start: 20210810

REACTIONS (1)
  - Illness [Unknown]
